FAERS Safety Report 23765944 (Version 2)
Quarter: 2024Q2

REPORT INFORMATION
  Report Type: Spontaneous
  Country: DE (occurrence: None)
  Receive Date: 20240421
  Receipt Date: 20240425
  Transmission Date: 20240716
  Serious: Yes (Other)
  Sender: FDA-Public Use
  Company Number: 2024A093460

PATIENT
  Age: 80 Year
  Sex: Male

DRUGS (1)
  1. XIGDUO XR [Suspect]
     Active Substance: DAPAGLIFLOZIN PROPANEDIOL\METFORMIN HYDROCHLORIDE
     Dosage: DOSE AND FREQUENCY UNKNOWN UNKNOWN
     Route: 048

REACTIONS (3)
  - Cerebrovascular accident [Unknown]
  - Dysphagia [Unknown]
  - Off label use [Unknown]
